FAERS Safety Report 5611398-0 (Version None)
Quarter: 2008Q1

REPORT INFORMATION
  Report Type: 
  Country: None (occurrence: None)
  Receive Date: 20080201
  Receipt Date: 20080122
  Transmission Date: 20080703
  Serious: No
  Sender: FDA-Public Use
  Company Number: JP-PFIZER INC-2007108278

PATIENT
  Sex: Female
  Weight: 58 kg

DRUGS (10)
  1. SOLU-MEDROL [Suspect]
     Indication: COLITIS ULCERATIVE
     Dosage: DAILY DOSE:250MG
     Route: 042
     Dates: start: 20071222, end: 20071224
  2. SALAZOPYRIN [Concomitant]
     Route: 048
  3. BIOSMIN [Concomitant]
     Route: 048
  4. LACTOBACILLUS ACIDOPHILUS/LACTOBACILLUS CASEI [Concomitant]
     Route: 048
  5. ALL OTHER THERAPEUTIC PRODUCTS [Concomitant]
     Route: 048
  6. MESALAMINE [Concomitant]
     Route: 048
  7. SOLU-CORTEF [Concomitant]
     Route: 042
     Dates: start: 20071221, end: 20071221
  8. FLUMARIN [Concomitant]
     Route: 042
     Dates: start: 20071221, end: 20071222
  9. GASTER [Concomitant]
     Route: 048
     Dates: start: 20071222, end: 20071224
  10. LONGES [Concomitant]
     Route: 048
     Dates: start: 20071222, end: 20071224

REACTIONS (5)
  - ALANINE AMINOTRANSFERASE DECREASED [None]
  - ASPARTATE AMINOTRANSFERASE DECREASED [None]
  - LYMPH NODE PAIN [None]
  - MYALGIA [None]
  - PROTEIN TOTAL DECREASED [None]
